FAERS Safety Report 7046088-3 (Version None)
Quarter: 2010Q4

REPORT INFORMATION
  Report Type: 
  Country: None (occurrence: None)
  Receive Date: 20101014
  Receipt Date: 20101004
  Transmission Date: 20110411
  Serious: Yes (Other)
  Sender: FDA-Public Use
  Company Number: CA-WYE-H17363610

PATIENT
  Age: 80 Year
  Sex: Female
  Weight: 49.7 kg

DRUGS (13)
  1. PANTOLOC [Suspect]
     Indication: PROPHYLAXIS AGAINST GASTROINTESTINAL ULCER
     Route: 048
     Dates: start: 20071208, end: 20100317
  2. CALCIUM WITH VITAMIN D [Concomitant]
  3. EFFEXOR XR [Concomitant]
  4. EFFEXOR XR [Concomitant]
  5. FLORINEF [Concomitant]
  6. ZYPREXA [Concomitant]
  7. GRAVOL TAB [Concomitant]
     Dosage: 25 MG PRN
  8. LIPITOR [Concomitant]
  9. PLAVIX [Concomitant]
  10. TYLENOL [Concomitant]
     Dosage: 650 MG PRN
  11. AMATINE [Concomitant]
  12. AMATINE [Concomitant]
  13. GLUCOPHAGE [Concomitant]

REACTIONS (1)
  - HYPOMAGNESAEMIA [None]
